FAERS Safety Report 20600482 (Version 4)
Quarter: 2022Q3

REPORT INFORMATION
  Report Type: Report from Study
  Country: US (occurrence: US)
  Receive Date: 20220316
  Receipt Date: 20220708
  Transmission Date: 20221026
  Serious: Yes (Death, Hospitalization)
  Sender: FDA-Public Use
  Company Number: US-NOVARTISPH-NVSC2022US058848

PATIENT
  Age: 75 Year
  Sex: Female

DRUGS (1)
  1. KESIMPTA [Suspect]
     Active Substance: OFATUMUMAB
     Indication: Multiple sclerosis
     Dosage: 20 MG (START DATE: FALL OF 2021 AND STOP DATE: SPRING OF 2022)
     Route: 058
     Dates: start: 2021

REACTIONS (8)
  - Death [Fatal]
  - Pneumonia [Unknown]
  - Sepsis [Unknown]
  - Peripheral sensorimotor neuropathy [Unknown]
  - Myalgia [Recovering/Resolving]
  - Neuralgia [Recovering/Resolving]
  - Muscle spasms [Recovering/Resolving]
  - Asthenia [Unknown]

NARRATIVE: CASE EVENT DATE: 20220201
